FAERS Safety Report 13278157 (Version 1)
Quarter: 2017Q1

REPORT INFORMATION
  Report Type: Report from Study
  Country: MX (occurrence: MX)
  Receive Date: 20170228
  Receipt Date: 20170228
  Transmission Date: 20170428
  Serious: Yes (Life-Threatening, Hospitalization)
  Sender: FDA-Public Use
  Company Number: PHHY2017MX005056

PATIENT
  Age: 65 Year
  Sex: Male
  Weight: 63 kg

DRUGS (4)
  1. EXFORGE [Suspect]
     Active Substance: AMLODIPINE BESYLATE\VALSARTAN
     Dosage: 0.5 DF, (WHEN HE TRAVELS TO THE BEACH)
     Route: 065
  2. EXFORGE [Suspect]
     Active Substance: AMLODIPINE BESYLATE\VALSARTAN
     Indication: HYPERTENSION
     Dosage: 1 OR 2 (AMLODIPINE 5 MG, VALSARTAN 320 MG) (DEPENDING ON HOW HIS PRESSURE WAS)
     Route: 065
     Dates: start: 2013
  3. EXFORGE [Suspect]
     Active Substance: AMLODIPINE BESYLATE\VALSARTAN
     Dosage: 1 DF (AMLODIPINE 5 MG, VALSARTAN 320 MG) QD
     Route: 048
     Dates: start: 2013
  4. GALVUS [Suspect]
     Active Substance: VILDAGLIPTIN
     Indication: DIABETES MELLITUS
     Dosage: 3 DF (50 MG), QD
     Route: 048
     Dates: start: 2013

REACTIONS (5)
  - Incorrect dose administered [Not Recovered/Not Resolved]
  - Drug dependence [Unknown]
  - Wrong technique in product usage process [Unknown]
  - Hypertensive crisis [Unknown]
  - Drug prescribing error [Unknown]

NARRATIVE: CASE EVENT DATE: 2013
